FAERS Safety Report 8532474-9 (Version None)
Quarter: 2012Q3

REPORT INFORMATION
  Report Type: 
  Country: None (occurrence: None)
  Receive Date: 20120716
  Receipt Date: 20120716
  Transmission Date: 20120928
  Serious: Yes (Life-Threatening, Hospitalization, Other)
  Sender: FDA-Public Use
  Company Number: None

PATIENT
  Age: 55 Year
  Sex: Female
  Weight: 93.441 kg

DRUGS (2)
  1. CYMBALTA [Suspect]
     Indication: BACK PAIN
  2. CYMBALTA [Suspect]
     Indication: MAJOR DEPRESSION

REACTIONS (9)
  - ORAL PAIN [None]
  - ORAL DISORDER [None]
  - ORAL MUCOSA EROSION [None]
  - DEVICE FAILURE [None]
  - OEDEMA MOUTH [None]
  - FOOT FRACTURE [None]
  - SKIN CANCER [None]
  - OEDEMA [None]
  - RASH [None]
